FAERS Safety Report 7344946-3 (Version None)
Quarter: 2011Q1

REPORT INFORMATION
  Report Type: 
  Country: None (occurrence: None)
  Receive Date: 20110310
  Receipt Date: 20110301
  Transmission Date: 20110831
  Serious: Yes (Hospitalization)
  Sender: FDA-Public Use
  Company Number: Z0003698A

PATIENT
  Sex: Female
  Weight: 56.3 kg

DRUGS (3)
  1. FLUDARA [Suspect]
     Route: 042
     Dates: start: 20100204
  2. CYCLOPHOSPHAMIDE [Suspect]
     Route: 042
     Dates: start: 20100204
  3. OFATUMUMAB [Suspect]
     Route: 042
     Dates: start: 20100203

REACTIONS (2)
  - FEBRILE NEUTROPENIA [None]
  - NEUTROPENIA [None]
